FAERS Safety Report 7775347-1 (Version None)
Quarter: 2011Q3

REPORT INFORMATION
  Report Type: 
  Country: None (occurrence: None)
  Receive Date: 20110923
  Receipt Date: 20110912
  Transmission Date: 20111222
  Serious: Yes (Hospitalization)
  Sender: FDA-Public Use
  Company Number: PHHY2011US81588

PATIENT
  Sex: Female
  Weight: 85.3 kg

DRUGS (3)
  1. MYFORTIC [Suspect]
     Indication: RENAL TRANSPLANT
     Dosage: 360 MG, BID
     Route: 048
     Dates: start: 20100429, end: 20110806
  2. PREDNISONE [Concomitant]
     Dosage: UNK UKN, UNK
  3. ESTROGEN NOS [Concomitant]
     Dosage: UNK UKN, UNK

REACTIONS (4)
  - DEEP VEIN THROMBOSIS [None]
  - OEDEMA PERIPHERAL [None]
  - ERYTHEMA [None]
  - PAIN IN EXTREMITY [None]
